FAERS Safety Report 7884687-7 (Version None)
Quarter: 2011Q4

REPORT INFORMATION
  Report Type: 
  Country: None (occurrence: None)
  Receive Date: 20111102
  Receipt Date: 20111027
  Transmission Date: 20120403
  Serious: Yes (Other)
  Sender: FDA-Public Use
  Company Number: BR-PFIZER INC-2011221197

PATIENT
  Age: 25 Year
  Sex: Female
  Weight: 48 kg

DRUGS (3)
  1. MEDROXYPROGESTERONE ACETATE [Suspect]
     Indication: MENSTRUATION IRREGULAR
  2. FOLIC ACID [Concomitant]
     Indication: PREGNANCY
     Dosage: UNK
     Dates: start: 20111019
  3. MEDROXYPROGESTERONE ACETATE [Suspect]
     Indication: OFF LABEL USE
     Dosage: 10 MG (ONE TABLET), 1X/DAY
     Route: 048
     Dates: start: 20110913, end: 20110926

REACTIONS (11)
  - WEIGHT DECREASED [None]
  - WEIGHT FLUCTUATION [None]
  - SOMNOLENCE [None]
  - INSOMNIA [None]
  - RETCHING [None]
  - MENSTRUATION IRREGULAR [None]
  - ALOPECIA [None]
  - NERVOUSNESS [None]
  - HYDROMETRA [None]
  - POLLAKIURIA [None]
  - MENSTRUATION DELAYED [None]
